FAERS Safety Report 7057332-0 (Version None)
Quarter: 2010Q4

REPORT INFORMATION
  Report Type: 
  Country: None (occurrence: None)
  Receive Date: 20101022
  Receipt Date: 20101019
  Transmission Date: 20110411
  Serious: Yes (Death)
  Sender: FDA-Public Use
  Company Number: JP-SANOFI-AVENTIS-2010SA063439

PATIENT

DRUGS (3)
  1. TAXOTERE [Suspect]
     Route: 041
  2. TS-1 [Concomitant]
  3. OXYCONTIN [Concomitant]

REACTIONS (1)
  - BONE MARROW FAILURE [None]
